FAERS Safety Report 6390253-5 (Version None)
Quarter: 2009Q4

REPORT INFORMATION
  Report Type: 
  Country: None (occurrence: None)
  Receive Date: 20091006
  Receipt Date: 20090930
  Transmission Date: 20100525
  Serious: Yes (Other)
  Sender: FDA-Public Use
  Company Number: B0596335A

PATIENT
  Age: 36 Year
  Sex: Male

DRUGS (1)
  1. AROPAX [Suspect]
     Indication: ANXIETY
     Route: 065
     Dates: end: 20090101

REACTIONS (1)
  - AGGRESSION [None]
